FAERS Safety Report 19614910 (Version 5)
Quarter: 2024Q2

REPORT INFORMATION
  Report Type: Report from Study
  Country: US (occurrence: US)
  Receive Date: 20210727
  Receipt Date: 20240628
  Transmission Date: 20240716
  Serious: Yes (Hospitalization, Other)
  Sender: FDA-Public Use
  Company Number: US-SHIRE-US202011381

PATIENT
  Sex: Female

DRUGS (3)
  1. HUMAN IMMUNOGLOBULIN G [Suspect]
     Active Substance: HUMAN IMMUNOGLOBULIN G
     Indication: Primary immunodeficiency syndrome
     Dosage: 50 GRAM, MONTHLY
     Route: 042
  2. HUMAN IMMUNOGLOBULIN G [Suspect]
     Active Substance: HUMAN IMMUNOGLOBULIN G
     Dosage: UNK
     Route: 042
  3. HUMAN IMMUNOGLOBULIN G [Suspect]
     Active Substance: HUMAN IMMUNOGLOBULIN G
     Dosage: 50 GRAM, Q3WEEKS
     Route: 065

REACTIONS (12)
  - Chronic lymphocytic leukaemia [Unknown]
  - Pneumonia pseudomonal [Unknown]
  - Pneumonia [Unknown]
  - Infection [Unknown]
  - Weight decreased [Unknown]
  - Arthropathy [Unknown]
  - Chronic obstructive pulmonary disease [Unknown]
  - Infusion related reaction [Unknown]
  - Aphasia [Unknown]
  - Blood pressure systolic increased [Unknown]
  - Sinusitis [Unknown]
  - Product dose omission issue [Unknown]
